FAERS Safety Report 9686470 (Version 1)
Quarter: 2013Q4

REPORT INFORMATION
  Report Type: Spontaneous
  Country: NZ (occurrence: None)
  Receive Date: 20131108
  Receipt Date: 20131108
  Transmission Date: 20140711
  Serious: Yes (Other)
  Sender: FDA-Public Use
  Company Number: NZ-20130012

PATIENT
  Age: 45 Year
  Sex: Female

DRUGS (1)
  1. DOTAREM [Suspect]
     Indication: NUCLEAR MAGNETIC RESONANCE IMAGING BRAIN
     Dosage: 10 ML. 1 IN 1 D
     Route: 040
     Dates: start: 20131024, end: 20131024

REACTIONS (4)
  - Sneezing [None]
  - Cough [None]
  - Throat irritation [None]
  - Blood pressure decreased [None]
